FAERS Safety Report 7636945-9 (Version None)
Quarter: 2011Q3

REPORT INFORMATION
  Report Type: 
  Country: None (occurrence: None)
  Receive Date: 20110726
  Receipt Date: 20110718
  Transmission Date: 20111222
  Serious: Yes (Hospitalization)
  Sender: FDA-Public Use
  Company Number: US-US-EMD SERONO, INC.-7071980

PATIENT
  Sex: Female
  Weight: 118 kg

DRUGS (2)
  1. REBIF [Suspect]
     Indication: MULTIPLE SCLEROSIS
     Route: 058
     Dates: start: 20100608
  2. UNSPECIFIED MEDICATIONS [TOO MANY TO LIST] [Concomitant]

REACTIONS (2)
  - NEPHROLITHIASIS [None]
  - CARDIAC FAILURE CONGESTIVE [None]
